FAERS Safety Report 7764280-7 (Version None)
Quarter: 2011Q3

REPORT INFORMATION
  Report Type: 
  Country: None (occurrence: None)
  Receive Date: 20110921
  Receipt Date: 20110909
  Transmission Date: 20111222
  Serious: Yes (Other)
  Sender: FDA-Public Use
  Company Number: US-ELI_LILLY_AND_COMPANY-US201106001524

PATIENT
  Sex: Female
  Weight: 45 kg

DRUGS (10)
  1. MULTI-VITAMINS [Concomitant]
  2. HYDROCHLOROTHIAZIDE [Concomitant]
  3. FORTEO [Suspect]
     Dosage: 20 UG, QD
  4. VITAMIN B COMPLEX CAP [Concomitant]
  5. FORTEO [Suspect]
     Indication: OSTEOPOROSIS
     Dosage: 20 UG, QD
     Dates: start: 20100206
  6. CALCIUM CARBONATE [Concomitant]
  7. ASCORBIC ACID [Concomitant]
  8. FORTEO [Suspect]
     Dosage: 20 UG, QD
  9. ASPIRIN [Concomitant]
     Indication: HEADACHE
     Dosage: UNK, PRN
  10. VITAMIN TAB [Concomitant]

REACTIONS (3)
  - BREAST CANCER IN SITU [None]
  - BREAST CANCER [None]
  - HYPERCALCAEMIA [None]
